FAERS Safety Report 8171020-9 (Version None)
Quarter: 2012Q1

REPORT INFORMATION
  Report Type: 
  Country: None (occurrence: None)
  Receive Date: 20120113
  Receipt Date: 20111017
  Transmission Date: 20120608
  Serious: No
  Sender: FDA-Public Use
  Company Number: 2011S1000084

PATIENT
  Age: 41 Year
  Sex: Male

DRUGS (3)
  1. ALLOPURINOL [Concomitant]
  2. COLCHICINE [Concomitant]
  3. KRYSTEXXA [Suspect]
     Indication: GOUT
     Dosage: X1;IV
     Route: 042
     Dates: start: 20111006, end: 20111006

REACTIONS (1)
  - GOUT [None]
